FAERS Safety Report 19984625 (Version 3)
Quarter: 2021Q4

REPORT INFORMATION
  Report Type: Spontaneous
  Country: JP (occurrence: JP)
  Receive Date: 20211021
  Receipt Date: 20211227
  Transmission Date: 20220303
  Serious: Yes (Death, Other)
  Sender: FDA-Public Use
  Company Number: JP-ABBVIE-21K-087-4130006-00

PATIENT
  Age: 49 Year
  Sex: Female

DRUGS (3)
  1. HUMIRA [Suspect]
     Active Substance: ADALIMUMAB
     Indication: Pyogenic sterile arthritis pyoderma gangrenosum and acne syndrome
     Route: 058
  2. METHOTREXATE [Concomitant]
     Active Substance: METHOTREXATE
     Indication: Pyogenic sterile arthritis pyoderma gangrenosum and acne syndrome
  3. INFLIXIMAB [Concomitant]
     Active Substance: INFLIXIMAB
     Indication: Pyogenic sterile arthritis pyoderma gangrenosum and acne syndrome

REACTIONS (6)
  - Death [Fatal]
  - B-cell lymphoma [Unknown]
  - Renal failure [Unknown]
  - Nephrotic syndrome [Unknown]
  - Hyperkalaemia [Unknown]
  - Metabolic acidosis [Unknown]
